FAERS Safety Report 9869658 (Version 1)
Quarter: 2014Q1

REPORT INFORMATION
  Report Type: Spontaneous
  Country: DE (occurrence: FR)
  Receive Date: 20140205
  Receipt Date: 20140205
  Transmission Date: 20141002
  Serious: Yes (Hospitalization)
  Sender: FDA-Public Use
  Company Number: FR-FRI-1000053380

PATIENT
  Age: 85 Year
  Sex: Female

DRUGS (3)
  1. MEMANTINE [Suspect]
     Dosage: 20 MG
     Route: 048
     Dates: end: 20131107
  2. LEVOTHYROX [Concomitant]
  3. MICROPAKINE [Concomitant]

REACTIONS (2)
  - Myoclonus [Recovered/Resolved]
  - Psychomotor hyperactivity [Recovered/Resolved]
